FAERS Safety Report 16740374 (Version 1)
Quarter: 2019Q3

REPORT INFORMATION
  Report Type: Spontaneous
  Country: US (occurrence: US)
  Receive Date: 20190826
  Receipt Date: 20190826
  Transmission Date: 20191005
  Serious: Yes (Other)
  Sender: FDA-Public Use
  Company Number: US-ASTELLAS-2018US052215

PATIENT
  Age: 4 Decade
  Sex: Male

DRUGS (1)
  1. AMBISOME [Suspect]
     Active Substance: AMPHOTERICIN B
     Indication: PRODUCT USED FOR UNKNOWN INDICATION
     Dosage: 4.2 MG/KG, UNKNOWN FREQ.
     Route: 065

REACTIONS (1)
  - Nephropathy toxic [Unknown]
